FAERS Safety Report 8552027-6 (Version None)
Quarter: 2012Q3

REPORT INFORMATION
  Report Type: 
  Country: None (occurrence: None)
  Receive Date: 20120730
  Receipt Date: 20120724
  Transmission Date: 20120928
  Serious: Yes (Life-Threatening, Hospitalization, Other)
  Sender: FDA-Public Use
  Company Number: NL-GENZYME-CLOF-1002233

PATIENT
  Sex: Female
  Weight: 61.9 kg

DRUGS (4)
  1. CLOFARABINE [Suspect]
     Indication: PRODUCT USED FOR UNKNOWN INDICATION
     Dosage: 17 MG AT DAY 2, 4, 6, 8, 10, UNK
     Route: 042
     Dates: start: 20120701
  2. IDARUBICIN HCL [Suspect]
     Indication: PRODUCT USED FOR UNKNOWN INDICATION
     Dosage: 17 MG AT DAY 1, 3, 5
     Route: 042
     Dates: start: 20120630
  3. CYTARABINE [Suspect]
     Indication: PRODUCT USED FOR UNKNOWN INDICATION
     Dosage: UNK, FROM DAY 1 TO 10
     Route: 042
  4. CYTARABINE [Suspect]

REACTIONS (2)
  - PANCYTOPENIA [None]
  - ASCITES [None]
